FAERS Safety Report 7390981-9 (Version None)
Quarter: 2011Q2

REPORT INFORMATION
  Report Type: 
  Country: None (occurrence: None)
  Receive Date: 20110404
  Receipt Date: 20110330
  Transmission Date: 20111010
  Serious: No
  Sender: FDA-Public Use
  Company Number: US-PFIZER INC-2011071210

PATIENT
  Sex: Female
  Weight: 67.12 kg

DRUGS (3)
  1. LISINOPRIL [Concomitant]
     Indication: HYPERTENSION
     Dosage: UNK
  2. CHANTIX [Suspect]
     Indication: SMOKING CESSATION THERAPY
     Dosage: 0.5 MG, 1X/DAY
     Route: 048
     Dates: start: 20100101, end: 20100101
  3. CHANTIX [Suspect]
     Dosage: 1 MG, 1X/DAY
     Dates: start: 20110328

REACTIONS (1)
  - DRUG INEFFECTIVE [None]
